FAERS Safety Report 9204741 (Version 1)
Quarter: 2013Q2

REPORT INFORMATION
  Report Type: Spontaneous
  Country: US (occurrence: US)
  Receive Date: 20130402
  Receipt Date: 20130402
  Transmission Date: 20140414
  Serious: Yes (Hospitalization)
  Sender: FDA-Public Use
  Company Number: US-GLAXOSMITHKLINE-A0815694A

PATIENT
  Age: 46 Year
  Sex: Female
  Weight: 120.4 kg

DRUGS (1)
  1. AVANDIA [Suspect]
     Indication: DIABETES MELLITUS
     Dosage: 4MG SEE DOSAGE TEXT
     Route: 048
     Dates: start: 199701, end: 200804

REACTIONS (2)
  - Cardiac failure congestive [Not Recovered/Not Resolved]
  - Angina unstable [Unknown]
